FAERS Safety Report 8083747-8 (Version None)
Quarter: 2012Q1

REPORT INFORMATION
  Report Type: 
  Country: None (occurrence: None)
  Receive Date: 20120127
  Receipt Date: 20110124
  Transmission Date: 20120608
  Serious: No
  Sender: FDA-Public Use
  Company Number: US-ABBOTT-11P-163-0700119-00

PATIENT
  Age: 39 Year
  Sex: Male

DRUGS (2)
  1. HUMIRA [Suspect]
     Indication: PSORIASIS
     Dates: end: 20110110
  2. PENICILLIN [Suspect]
     Indication: PHARYNGITIS STREPTOCOCCAL
     Dates: start: 20110101

REACTIONS (2)
  - EYE MOVEMENT DISORDER [None]
  - PHARYNGITIS STREPTOCOCCAL [None]
